FAERS Safety Report 23347589 (Version 1)
Quarter: 2023Q4

REPORT INFORMATION
  Report Type: Other
  Country: US (occurrence: US)
  Receive Date: 20231228
  Receipt Date: 20231228
  Transmission Date: 20240110
  Serious: Yes (Other)
  Sender: FDA-Public Use
  Company Number: US-BoehringerIngelheim-2023-BI-279572

PATIENT
  Age: 72 Year
  Sex: Male

DRUGS (2)
  1. ALTEPLASE [Suspect]
     Active Substance: ALTEPLASE
     Indication: Pulmonary embolism
     Dosage: TOTAL DOSE 50 MG OVER 2 HOURS; THE INITIAL BOLUS OF 10 MG.
     Route: 065
  2. APIXABAN [Concomitant]
     Active Substance: APIXABAN
     Indication: Deep vein thrombosis

REACTIONS (3)
  - Anaphylactic shock [Unknown]
  - Haemodynamic instability [Unknown]
  - Obstructive shock [Unknown]
